FAERS Safety Report 8279715-3 (Version None)
Quarter: 2012Q2

REPORT INFORMATION
  Report Type: 
  Country: None (occurrence: None)
  Receive Date: 20120412
  Receipt Date: 20110523
  Transmission Date: 20120825
  Serious: No
  Sender: FDA-Public Use
  Company Number: US-ASTRAZENECA-2011SE16712

PATIENT
  Age: 81 Year
  Sex: Male

DRUGS (3)
  1. NEXIUM [Suspect]
     Route: 048
  2. PLAVIX [Interacting]
     Route: 065
  3. CRESTOR [Concomitant]

REACTIONS (1)
  - DRUG INTERACTION [None]
